FAERS Safety Report 5574637-0 (Version None)
Quarter: 2007Q4

REPORT INFORMATION
  Report Type: 
  Country: None (occurrence: None)
  Receive Date: 20071227
  Receipt Date: 20070412
  Transmission Date: 20080405
  Serious: Yes (Death)
  Sender: FDA-Public Use
  Company Number: CZ-ROCHE-537202

PATIENT
  Age: 73 Year
  Sex: Female
  Weight: 98 kg

DRUGS (1)
  1. ORLISTAT [Suspect]
     Indication: OBESITY
     Route: 048
     Dates: start: 20060302

REACTIONS (1)
  - DEATH [None]
